FAERS Safety Report 8603528-3 (Version None)
Quarter: 2012Q3

REPORT INFORMATION
  Report Type: 
  Country: None (occurrence: None)
  Receive Date: 20120817
  Receipt Date: 20120813
  Transmission Date: 20120928
  Serious: Yes (Other)
  Sender: FDA-Public Use
  Company Number: US-PFIZER INC-2012020364

PATIENT
  Age: 59 Year
  Sex: Female
  Weight: 80.73 kg

DRUGS (7)
  1. LASIX [Concomitant]
     Indication: LYMPHATIC DISORDER
     Dosage: 80MG (TWO 40MG) IN THE MORNING AND 40MG IN THE AFTERNOON
  2. PRILOSEC [Concomitant]
     Indication: HIATUS HERNIA
     Dosage: 20 MG, DAILY
  3. XANAX [Concomitant]
     Dosage: 0.5 MG, DAILY
  4. ZOCOR [Concomitant]
     Dosage: 80 MG, DAILY
  5. POTASSIUM CHLORIDE [Concomitant]
     Indication: LYMPHATIC DISORDER
     Dosage: 8 MEQ, DAILY
  6. SPIRONOLACTONE [Concomitant]
     Indication: LYMPHATIC DISORDER
     Dosage: 100 MG, DAILY (2 TABLETS IN THE MORNING)
  7. LYRICA [Suspect]
     Indication: FIBROMYALGIA
     Dosage: 75 MG, 2X/DAY
     Dates: start: 20120121

REACTIONS (12)
  - LYMPHOEDEMA [None]
  - ANXIETY [None]
  - DISTURBANCE IN ATTENTION [None]
  - FEELING ABNORMAL [None]
  - FRUSTRATION [None]
  - DYSPHONIA [None]
  - WEIGHT INCREASED [None]
  - FATIGUE [None]
  - NEOPLASM [None]
  - PAIN [None]
  - SOMNOLENCE [None]
  - UPPER-AIRWAY COUGH SYNDROME [None]
